FAERS Safety Report 18092851 (Version 3)
Quarter: 2020Q3

REPORT INFORMATION
  Report Type: Spontaneous
  Country: US (occurrence: US)
  Receive Date: 20200730
  Receipt Date: 20200806
  Transmission Date: 20201103
  Serious: Yes (Other)
  Sender: FDA-Public Use
  Company Number: US-PFIZER INC-2020204602

PATIENT
  Age: 80 Year
  Sex: Male
  Weight: 93.44 kg

DRUGS (5)
  1. KEYTRUDA [Suspect]
     Active Substance: PEMBROLIZUMAB
     Dosage: UNK
     Dates: start: 20200616, end: 20200721
  2. AMLODIPINE [Concomitant]
     Active Substance: AMLODIPINE BESYLATE
     Indication: BLOOD PRESSURE MEASUREMENT
     Dosage: 5 MG, 1X/DAY
     Dates: start: 2005
  3. SERTRALINE [Concomitant]
     Active Substance: SERTRALINE HYDROCHLORIDE
     Dosage: 50 MG, 1X/DAY
     Dates: start: 2005
  4. INLYTA [Suspect]
     Active Substance: AXITINIB
     Indication: RENAL CANCER
     Dosage: 5 MG, 2X/DAY (ONCE IN THE MORNING AND ONCE AT NIGHT)
     Route: 048
     Dates: start: 20200615, end: 20200721
  5. LISINOPRIL/HCTZ [Concomitant]
     Active Substance: HYDROCHLOROTHIAZIDE\LISINOPRIL
     Indication: BLOOD PRESSURE MEASUREMENT
     Dosage: TWO 20?12.5 MG TABLETS, 1X/DAY
     Dates: start: 2000

REACTIONS (13)
  - Taste disorder [Recovering/Resolving]
  - Weight decreased [Unknown]
  - Tongue discomfort [Recovering/Resolving]
  - Skin exfoliation [Recovering/Resolving]
  - Laryngitis [Unknown]
  - Skin lesion [Recovering/Resolving]
  - Dyschezia [Recovering/Resolving]
  - Dyspnoea [Recovering/Resolving]
  - Aphonia [Unknown]
  - Ear discomfort [Recovering/Resolving]
  - Feeling cold [Recovering/Resolving]
  - Hypertension [Recovering/Resolving]
  - Fatigue [Recovering/Resolving]

NARRATIVE: CASE EVENT DATE: 20200621
